FAERS Safety Report 11103685 (Version 1)
Quarter: 2015Q2

REPORT INFORMATION
  Report Type: Spontaneous
  Country: IT (occurrence: None)
  Receive Date: 20150507
  Receipt Date: 20150507
  Transmission Date: 20150821
  Serious: Yes (Hospitalization, Other)
  Sender: FDA-Public Use
  Company Number: 2015/034

PATIENT
  Age: 51 Year
  Sex: Female

DRUGS (1)
  1. DIVALPROEX (NO PREF. NAME) [Suspect]
     Active Substance: DIVALPROEX SODIUM
     Indication: BIPOLAR DISORDER
     Dates: start: 2008

REACTIONS (3)
  - Pulmonary alveolar haemorrhage [None]
  - Haemoptysis [None]
  - Anaemia [None]
